FAERS Safety Report 4823419-3 (Version None)
Quarter: 2005Q4

REPORT INFORMATION
  Report Type: 
  Country: None (occurrence: None)
  Receive Date: 20051108
  Receipt Date: 20051108
  Transmission Date: 20060501
  Serious: Yes (Life-Threatening, Other)
  Sender: FDA-Public Use
  Company Number: None

PATIENT
  Age: 52 Year
  Sex: Female
  Weight: 108.8633 kg

DRUGS (4)
  1. FORADIL W/METOLAZONE [Suspect]
     Indication: ASTHMA
     Dosage: 1 CAPSULE 2 X 12 MG
     Dates: start: 20040623, end: 20040723
  2. FORADIL W/METOLAZONE [Suspect]
     Indication: COMPLEX REGIONAL PAIN SYNDROME
     Dosage: 1 CAPSULE 2 X 12 MG
     Dates: start: 20040623, end: 20040723
  3. FORADIL W/METOLAZONE [Suspect]
     Indication: HAEMORRHAGE
     Dosage: 1 CAPSULE 2 X 12 MG
     Dates: start: 20040623, end: 20040723
  4. ... [Concomitant]

REACTIONS (5)
  - ASTHMA [None]
  - BLOOD DISORDER [None]
  - FALL [None]
  - NEUROPATHY PERIPHERAL [None]
  - RESPIRATORY DISORDER [None]
